FAERS Safety Report 24309302 (Version 1)
Quarter: 2024Q3

REPORT INFORMATION
  Report Type: Report from Study
  Country: GR (occurrence: GR)
  Receive Date: 20240911
  Receipt Date: 20240911
  Transmission Date: 20241016
  Serious: Yes (Death, Hospitalization)
  Sender: ABBVIE
  Company Number: GR-ABBVIE-5825087

PATIENT
  Age: 78 Year
  Sex: Male

DRUGS (2)
  1. CARBIDOPA\LEVODOPA [Suspect]
     Active Substance: CARBIDOPA\LEVODOPA
     Indication: Parkinson^s disease
     Dosage: MORNING DOSE: 7.9ML; CONTINUOUS RATE: 2.4ML/H; EXTRA DOSE: 1.0ML
     Route: 050
     Dates: start: 20230331
  2. CARBIDOPA\LEVODOPA [Suspect]
     Active Substance: CARBIDOPA\LEVODOPA
     Dosage: MORNING DOSE: 9.0ML; CONTINUOUS RATE: 1.7ML/H; EXTRA DOSE: 1.4ML
     Route: 050

REACTIONS (4)
  - Cardiac arrest [Fatal]
  - Malnutrition [Not Recovered/Not Resolved]
  - Feeding disorder [Not Recovered/Not Resolved]
  - Food refusal [Not Recovered/Not Resolved]

NARRATIVE: CASE EVENT DATE: 20240905
